FAERS Safety Report 7898518-2 (Version None)
Quarter: 2011Q4

REPORT INFORMATION
  Report Type: 
  Country: None (occurrence: None)
  Receive Date: 20111107
  Receipt Date: 20111031
  Transmission Date: 20120403
  Serious: Yes (Other)
  Sender: FDA-Public Use
  Company Number: US-BAYER-2011-106166

PATIENT
  Sex: Female

DRUGS (7)
  1. ASPIRIN [Suspect]
     Indication: ISCHAEMIC HEART DISEASE PROPHYLAXIS
     Dosage: 81 MG, QD
     Route: 048
     Dates: start: 20100101, end: 20110101
  2. VITAMIN TAB [Concomitant]
  3. GLUCOSAMINE SULFATE W/CHONDROITIN [Concomitant]
     Dosage: UNK
  4. BIOTIN [Concomitant]
  5. CALCIUM [Concomitant]
  6. LUTEINE [Concomitant]
  7. PRESERVISION EYE VITAMIN AND MINERAL SUPPL. [Concomitant]

REACTIONS (1)
  - HAEMORRHAGE [None]
